FAERS Safety Report 7514145-0 (Version None)
Quarter: 2011Q2

REPORT INFORMATION
  Report Type: 
  Country: None (occurrence: None)
  Receive Date: 20110531
  Receipt Date: 20110518
  Transmission Date: 20111010
  Serious: Yes (Other)
  Sender: FDA-Public Use
  Company Number: US-BAYER-2011-043376

PATIENT
  Sex: Female

DRUGS (1)
  1. AVELOX [Suspect]
     Indication: NASOPHARYNGITIS
     Dosage: 400 MG, ONCE
     Route: 048
     Dates: start: 20110516, end: 20110516

REACTIONS (5)
  - PARAESTHESIA [None]
  - HYPERSENSITIVITY [None]
  - ERYTHEMA [None]
  - DYSPNOEA [None]
  - BURNING SENSATION [None]
